FAERS Safety Report 4868994-8 (Version None)
Quarter: 2005Q4

REPORT INFORMATION
  Report Type: 
  Country: None (occurrence: None)
  Receive Date: 20051229
  Receipt Date: 20051223
  Transmission Date: 20060501
  Serious: Yes (Other)
  Sender: FDA-Public Use
  Company Number: GB-ABBOTT-05P-167-0320632-00

PATIENT
  Age: 90 Year
  Sex: Female

DRUGS (4)
  1. EPILIM [Suspect]
     Indication: NEURALGIA
     Route: 065
     Dates: start: 20051209
  2. DOXEPIN HCL [Interacting]
     Indication: DRUG USE FOR UNKNOWN INDICATION
     Route: 065
  3. HYOSCINE HBR HYT [Interacting]
     Indication: DRUG USE FOR UNKNOWN INDICATION
     Route: 065
  4. ALFENTANIL [Interacting]
     Indication: DRUG USE FOR UNKNOWN INDICATION
     Route: 065

REACTIONS (3)
  - DRUG INTERACTION [None]
  - IMPAIRED SELF-CARE [None]
  - TREMOR [None]
